FAERS Safety Report 9445519 (Version 1)
Quarter: 2013Q3

REPORT INFORMATION
  Report Type: Spontaneous
  Country: US (occurrence: None)
  Receive Date: 20130802
  Receipt Date: 20130802
  Transmission Date: 20140515
  Serious: Yes (Death)
  Sender: FDA-Public Use
  Company Number: 1713747-2013-99925

PATIENT
  Age: 58 Year
  Sex: Female

DRUGS (1)
  1. DELFLEX [Suspect]
     Indication: PERITONEAL DIALYSIS
     Dosage: 8 YEARS OF PD TX

REACTIONS (1)
  - Cardiac disorder [None]
